FAERS Safety Report 11300943 (Version 1)
Quarter: 2015Q3

REPORT INFORMATION
  Report Type: Spontaneous
  Country: US (occurrence: US)
  Receive Date: 20150722
  Receipt Date: 20150722
  Transmission Date: 20151125
  Serious: No
  Sender: FDA-Public Use
  Company Number: US-ELI_LILLY_AND_COMPANY-US201203003526

PATIENT
  Sex: Female

DRUGS (3)
  1. ESTRADIOL. [Concomitant]
     Active Substance: ESTRADIOL
     Dosage: 0.5 MG, QD
  2. HYDROCORTISONE. [Concomitant]
     Active Substance: HYDROCORTISONE
     Dosage: 10 MG, BID
  3. HUMATROPE [Suspect]
     Active Substance: SOMATROPIN
     Indication: BLOOD GLUCOSE DECREASED
     Dosage: 0.4 MG, QD
     Dates: start: 201011

REACTIONS (2)
  - Off label use [Unknown]
  - Underdose [Unknown]
